FAERS Safety Report 7936819 (Version 3)
Quarter: 2014Q1

REPORT INFORMATION
  Report Type: Spontaneous
  Country: US (occurrence: US)
  Receive Date: 20110509
  Receipt Date: 20140123
  Transmission Date: 20141002
  Serious: Yes (Hospitalization, Other)
  Sender: FDA-Public Use
  Company Number: US-BAYER-2011-039059

PATIENT
  Age: 18 Year
  Sex: Female
  Weight: 56.69 kg

DRUGS (2)
  1. YAZ [Suspect]
     Dosage: UNK
     Dates: start: 2006, end: 2007
  2. ADVIL [Concomitant]

REACTIONS (7)
  - Cholelithiasis [None]
  - Cholecystitis chronic [None]
  - Pain [None]
  - Anxiety [None]
  - Fear [None]
  - Quality of life decreased [None]
  - Anhedonia [None]
